FAERS Safety Report 15963390 (Version 1)
Quarter: 2019Q1

REPORT INFORMATION
  Report Type: Report from Study
  Country: US (occurrence: US)
  Receive Date: 20190214
  Receipt Date: 20190214
  Transmission Date: 20190417
  Serious: Yes (Hospitalization, Other)
  Sender: FDA-Public Use
  Company Number: US-009507513-1710USA004117

PATIENT
  Age: 84 Year
  Sex: Male
  Weight: 68.03 kg

DRUGS (24)
  1. CODEINE [Suspect]
     Active Substance: CODEINE
     Indication: CANCER PAIN
  2. CARVEDILOL. [Concomitant]
     Active Substance: CARVEDILOL
     Indication: HYPERTENSION
     Dosage: UNK
  3. PEMBROLIZUMAB. [Suspect]
     Active Substance: PEMBROLIZUMAB
     Indication: METASTASES TO BONE
  4. COREG [Concomitant]
     Active Substance: CARVEDILOL
     Indication: BLOOD PRESSURE MEASUREMENT
     Dosage: 25 MG, TWICE DAILY
  5. COREG [Concomitant]
     Active Substance: CARVEDILOL
     Indication: CARDIAC DISORDER
  6. ASPIRIN. [Concomitant]
     Active Substance: ASPIRIN
     Dosage: 81 MG DAILY
  7. TERAZOSIN [Suspect]
     Active Substance: TERAZOSIN\TERAZOSIN HYDROCHLORIDE
     Indication: HYPERTENSION
     Dosage: 1 MG EVERY NIGHT
  8. VITAMINS (UNSPECIFIED) [Concomitant]
     Active Substance: VITAMINS
     Dosage: UNK
  9. OXYCODONE [Concomitant]
     Active Substance: OXYCODONE
     Dosage: UNK
  10. TERAZOSIN [Suspect]
     Active Substance: TERAZOSIN\TERAZOSIN HYDROCHLORIDE
     Indication: BLADDER DISORDER
  11. CALCIUM (UNSPECIFIED) [Concomitant]
     Active Substance: CALCIUM
     Indication: BONE DISORDER
  12. VITAMIN D [Concomitant]
     Active Substance: CHOLECALCIFEROL
     Indication: BONE DISORDER
  13. OCUVITE PRESERVISION [Concomitant]
     Indication: MACULAR DEGENERATION
     Dosage: 2 TABLETS DAILY
  14. ZOMETA [Suspect]
     Active Substance: ZOLEDRONIC ACID
     Dosage: UNK
     Dates: start: 2017
  15. CRESTOR [Concomitant]
     Active Substance: ROSUVASTATIN CALCIUM
     Indication: BLOOD CHOLESTEROL INCREASED
     Dosage: 20 MILLIGRAM, QOD
  16. RAPAFLO [Concomitant]
     Active Substance: SILODOSIN
     Dosage: UNK
  17. LEVOTHYROXINE SODIUM. [Concomitant]
     Active Substance: LEVOTHYROXINE SODIUM
     Indication: THYROID DISORDER
     Dosage: 0.25 MG DAILY; FOR 6-7 YEARS NOW
  18. UBIDECARENONE [Concomitant]
     Active Substance: UBIDECARENONE
     Indication: CARDIAC DISORDER
     Dosage: 200 MG DAILY
  19. CALCIUM D3 [Concomitant]
     Active Substance: CALCIUM\CHOLECALCIFEROL
     Dosage: UNK
  20. PEMBROLIZUMAB. [Suspect]
     Active Substance: PEMBROLIZUMAB
     Indication: METASTATIC NEOPLASM
  21. CYANOCOBALAMIN. [Concomitant]
     Active Substance: CYANOCOBALAMIN
     Dosage: 500 MCG DAILY
  22. ADVIL [Concomitant]
     Active Substance: IBUPROFEN
     Indication: ARTHRALGIA
     Dosage: 200 (UNITS NOT PROVIDED) AS NEEDED
  23. PEMBROLIZUMAB. [Suspect]
     Active Substance: PEMBROLIZUMAB
     Indication: LUNG NEOPLASM MALIGNANT
     Dosage: STRENGTH: 200 MG, 200 MG, EVERY 3 WEEKS (DOSE: AS PRESCRIBED)
     Route: 042
     Dates: start: 20170421
  24. PEMBROLIZUMAB. [Suspect]
     Active Substance: PEMBROLIZUMAB
     Indication: LUNG CANCER METASTATIC

REACTIONS (58)
  - Respiratory tract irritation [Unknown]
  - Sleep disorder [Not Recovered/Not Resolved]
  - Weight fluctuation [Unknown]
  - Rhinorrhoea [Not Recovered/Not Resolved]
  - Cardiac valve disease [Unknown]
  - Dry skin [Not Recovered/Not Resolved]
  - Dizziness [Unknown]
  - Pruritus [Unknown]
  - Neovascular age-related macular degeneration [Unknown]
  - Chest pain [Not Recovered/Not Resolved]
  - Fasting [Unknown]
  - Speech disorder [Unknown]
  - Lung disorder [Not Recovered/Not Resolved]
  - Dyspnoea [Not Recovered/Not Resolved]
  - Cancer pain [Not Recovered/Not Resolved]
  - Sudden onset of sleep [Unknown]
  - Macular degeneration [Unknown]
  - Chest discomfort [Not Recovered/Not Resolved]
  - Procedural pain [Recovering/Resolving]
  - Eye pain [Recovered/Resolved]
  - Myalgia [Recovering/Resolving]
  - Arthritis [Not Recovered/Not Resolved]
  - Inappropriate schedule of product administration [Unknown]
  - Cardiac pacemaker insertion [Unknown]
  - Ocular hyperaemia [Recovered/Resolved]
  - Eye swelling [Recovered/Resolved]
  - Adverse drug reaction [Unknown]
  - Constipation [Unknown]
  - Pollakiuria [Unknown]
  - Malaise [Unknown]
  - Decreased appetite [Recovering/Resolving]
  - Cough [Not Recovered/Not Resolved]
  - Cough [Not Recovered/Not Resolved]
  - Therapeutic response unexpected [Unknown]
  - Feeling cold [Unknown]
  - Drug effect decreased [Not Recovered/Not Resolved]
  - Injection site discomfort [Unknown]
  - Feeling abnormal [Recovered/Resolved]
  - Feeling abnormal [Unknown]
  - Gait disturbance [Recovering/Resolving]
  - Gait inability [Unknown]
  - Eye pain [Unknown]
  - Adverse event [Unknown]
  - Fatigue [Not Recovered/Not Resolved]
  - Asthenia [Unknown]
  - Vitreous floaters [Unknown]
  - Eye injury [Unknown]
  - Gait disturbance [Unknown]
  - Pain [Recovering/Resolving]
  - Cough [Unknown]
  - Arrhythmia [Recovering/Resolving]
  - Feeling abnormal [Recovered/Resolved]
  - Mobility decreased [Not Recovered/Not Resolved]
  - Hypersomnia [Recovered/Resolved]
  - Urinary tract infection [Recovered/Resolved]
  - Memory impairment [Unknown]
  - Musculoskeletal pain [Not Recovered/Not Resolved]
  - Product dose omission [Unknown]

NARRATIVE: CASE EVENT DATE: 2017
